FAERS Safety Report 21396857 (Version 1)
Quarter: 2022Q3

REPORT INFORMATION
  Report Type: Spontaneous
  Country: DE (occurrence: DE)
  Receive Date: 20220930
  Receipt Date: 20220930
  Transmission Date: 20221026
  Serious: Yes (Hospitalization, Other)
  Sender: FDA-Public Use
  Company Number: DE-ADRED-08014-01

PATIENT
  Age: 50 Year
  Sex: Female

DRUGS (6)
  1. PACLITAXEL [Suspect]
     Active Substance: PACLITAXEL
     Indication: Product used for unknown indication
     Dosage: LAST ADMINISTRATION 05 OCT
     Route: 042
  2. TAMOXIFEN [Suspect]
     Active Substance: TAMOXIFEN
     Indication: Product used for unknown indication
     Dosage: 20 MG, 0-0-1-0
     Route: 048
  3. PERTUZUMAB [Suspect]
     Active Substance: PERTUZUMAB
     Indication: Product used for unknown indication
     Dosage: LAST ADMINISTRATION 05 OCT
     Route: 042
  4. TRASTUZUMAB [Suspect]
     Active Substance: TRASTUZUMAB
     Indication: Product used for unknown indication
     Dosage: LAST ADMINISTRATION 05 OCT
     Route: 042
  5. LEVOTHYROXINE SODIUM [Concomitant]
     Active Substance: LEVOTHYROXINE SODIUM
     Indication: Product used for unknown indication
     Dosage: 125 UG, 1-0-0-0
     Route: 048
  6. METOPROLOL [Concomitant]
     Active Substance: METOPROLOL
     Indication: Product used for unknown indication
     Dosage: 23.75 MG,  IF REQUIRED 0.5 TABLETS WITH PRE-EXISTING SINUS TACHYCARDIA
     Route: 048

REACTIONS (11)
  - Product monitoring error [None]
  - Labelled drug-drug interaction medication error [None]
  - Pericardial effusion [None]
  - Chest discomfort [None]
  - Chest discomfort [None]
  - Hypertension [None]
  - Dyspnoea exertional [None]
  - Dyspnoea [None]
  - Angina pectoris [None]
  - Tachycardia [None]
  - Dyspnoea [None]
